FAERS Safety Report 7692637-1 (Version None)
Quarter: 2011Q3

REPORT INFORMATION
  Report Type: 
  Country: None (occurrence: None)
  Receive Date: 20110819
  Receipt Date: 20110815
  Transmission Date: 20111222
  Serious: Yes (Other)
  Sender: FDA-Public Use
  Company Number: US-BRISTOL-MYERS SQUIBB COMPANY-11921152

PATIENT
  Age: 74 Year
  Sex: Male
  Weight: 84 kg

DRUGS (6)
  1. COUMADIN [Suspect]
     Indication: HEART VALVE REPLACEMENT
     Dates: start: 20001101
  2. WARFARIN SODIUM [Suspect]
     Dosage: 1DF=5 TO 6MG
  3. ZESTRIL [Concomitant]
  4. BETAPACE [Concomitant]
  5. SYNTHROID [Concomitant]
  6. NORVASC [Concomitant]

REACTIONS (8)
  - TYPE 2 DIABETES MELLITUS [None]
  - ARRHYTHMIA [None]
  - PROTHROMBIN TIME ABNORMAL [None]
  - POLLAKIURIA [None]
  - RHINORRHOEA [None]
  - BODY HEIGHT DECREASED [None]
  - CONTUSION [None]
  - SKIN EXFOLIATION [None]
